FAERS Safety Report 25017629 (Version 1)
Quarter: 2025Q1

REPORT INFORMATION
  Report Type: Spontaneous
  Country: US (occurrence: None)
  Receive Date: 20250226
  Receipt Date: 20250226
  Transmission Date: 20250408
  Serious: Yes (Hospitalization)
  Sender: FDA-CTU
  Company Number: None

PATIENT
  Age: 85 Year
  Sex: Male
  Weight: 95.25 kg

DRUGS (5)
  1. FARXIGA [Suspect]
     Active Substance: DAPAGLIFLOZIN PROPANEDIOL
     Indication: Renal disorder
     Dosage: FREQUENCY : DAILY;?
     Route: 048
     Dates: start: 20240313, end: 20240330
  2. Calcium 500mg [Concomitant]
  3. Mannose Cranberry [Concomitant]
  4. VITAMIN B12 [Concomitant]
     Active Substance: CYANOCOBALAMIN
  5. VITAMIN D NOS [Concomitant]
     Active Substance: CHOLECALCIFEROL\ERGOCALCIFEROL

REACTIONS (6)
  - Glomerular filtration rate decreased [None]
  - Blood creatinine increased [None]
  - Therapy cessation [None]
  - Fall [None]
  - Urinary tract infection [None]
  - Economic problem [None]

NARRATIVE: CASE EVENT DATE: 20240806
